FAERS Safety Report 20851549 (Version 5)
Quarter: 2023Q4

REPORT INFORMATION
  Report Type: Report from Study
  Country: DE (occurrence: DE)
  Receive Date: 20220520
  Receipt Date: 20231206
  Transmission Date: 20240109
  Serious: Yes (Hospitalization, Other)
  Sender: FDA-Public Use
  Company Number: DE-CELLTRION INC.-2022DE006637

PATIENT

DRUGS (16)
  1. INFLIXIMAB-DYYB [Suspect]
     Active Substance: INFLIXIMAB-DYYB
     Indication: Axial spondyloarthritis
     Dosage: 120 MILLIGRAM, Q2WEEKS
     Route: 058
     Dates: start: 20210212, end: 20221011
  2. INFLIXIMAB-DYYB [Suspect]
     Active Substance: INFLIXIMAB-DYYB
     Dosage: 120 MILLIGRAM, Q2WEEKS
     Route: 058
     Dates: start: 20210216
  3. INFLIXIMAB-DYYB [Suspect]
     Active Substance: INFLIXIMAB-DYYB
     Dosage: 120 MILLIGRAM, Q2WEEKS
     Route: 058
     Dates: start: 20210915
  4. INFLIXIMAB-DYYB [Suspect]
     Active Substance: INFLIXIMAB-DYYB
     Dosage: 120 MILLIGRAM, Q2WEEKS
     Route: 058
     Dates: start: 20221108, end: 20230302
  5. ETORICOXIB [Concomitant]
     Active Substance: ETORICOXIB
     Dosage: 90 MG, 7 DAYS PER WEEK
     Dates: start: 20211115
  6. ETORICOXIB [Concomitant]
     Active Substance: ETORICOXIB
     Dosage: 90 MG
     Dates: start: 20211125, end: 20220315
  7. ETORICOXIB [Concomitant]
     Active Substance: ETORICOXIB
     Dosage: 90 MG
     Dates: start: 20211125, end: 20220513
  8. COSENTYX [Concomitant]
     Active Substance: SECUKINUMAB
     Dosage: 150 MG
     Dates: start: 20181106, end: 20190401
  9. CELECOXIB [Concomitant]
     Active Substance: CELECOXIB
     Dosage: 200 MG
     Dates: start: 20180405, end: 20190212
  10. CELECOXIB [Concomitant]
     Active Substance: CELECOXIB
     Dosage: 200 MG
     Dates: start: 20180405, end: 20190422
  11. CELECOXIB [Concomitant]
     Active Substance: CELECOXIB
     Dosage: 200 MG
     Dates: start: 20180405, end: 20190426
  12. CELECOXIB [Concomitant]
     Active Substance: CELECOXIB
     Dosage: 200 MG
     Dates: start: 20190905, end: 20200215
  13. INFLIXIMAB [Concomitant]
     Active Substance: INFLIXIMAB
     Dosage: 600 MG
     Dates: start: 20190426, end: 20191030
  14. INFLIXIMAB [Concomitant]
     Active Substance: INFLIXIMAB
     Dosage: 500 MG
     Dates: start: 20200207, end: 20200207
  15. INFLIXIMAB [Concomitant]
     Active Substance: INFLIXIMAB
     Dosage: 500 MG
     Dates: start: 20200515, end: 20200903
  16. ACEMETACIN [Concomitant]
     Active Substance: ACEMETACIN
     Dosage: 60 MG
     Dates: start: 20200511, end: 20200825

REACTIONS (18)
  - Tendon pain [Recovered/Resolved]
  - Micturition urgency [Recovered/Resolved]
  - Coronary artery disease [Unknown]
  - Osteoarthritis [Unknown]
  - Spinal disorder [Unknown]
  - Fibromyalgia [Unknown]
  - Normochromic normocytic anaemia [Unknown]
  - Axial spondyloarthritis [Unknown]
  - Arthralgia [Recovered/Resolved]
  - Myalgia [Recovered/Resolved]
  - Diarrhoea [Recovered/Resolved]
  - Oral candidiasis [Recovered/Resolved]
  - Tooth infection [Recovered/Resolved]
  - Hypertension [Unknown]
  - Hepatitis viral [Unknown]
  - Constipation [Unknown]
  - Depression [Unknown]
  - Intentional product use issue [Unknown]

NARRATIVE: CASE EVENT DATE: 20211125
